FAERS Safety Report 5158346-8 (Version None)
Quarter: 2006Q4

REPORT INFORMATION
  Report Type: 
  Country: None (occurrence: None)
  Receive Date: 20061121
  Receipt Date: 20061121
  Transmission Date: 20070319
  Serious: Yes (Hospitalization, Other)
  Sender: FDA-Public Use
  Company Number: None

PATIENT
  Age: 80 Year
  Sex: Female

DRUGS (9)
  1. ROCEPHIN [Suspect]
     Dosage: 2G DAILY IV
     Route: 042
     Dates: start: 20050830, end: 20050901
  2. ASPIRIN [Concomitant]
  3. CLOPIDOGREL [Concomitant]
  4. COLCHICINE [Concomitant]
  5. DILTIAZEM HCL [Concomitant]
  6. ENALAPRIL MALEATE [Concomitant]
  7. HEPARIN [Concomitant]
  8. INSULIN [Concomitant]
  9. SYNTHROID [Concomitant]

REACTIONS (1)
  - HEPATIC ENZYME INCREASED [None]
